FAERS Safety Report 9337800 (Version 2)
Quarter: 2013Q2

REPORT INFORMATION
  Report Type: Report from Study
  Country: FR (occurrence: FR)
  Receive Date: 20130607
  Receipt Date: 20130618
  Transmission Date: 20140414
  Serious: Yes (Death, Hospitalization)
  Sender: FDA-Public Use
  Company Number: FR-PFIZER INC-2013169120

PATIENT
  Sex: Male

DRUGS (1)
  1. TORISEL [Suspect]
     Indication: NEOPLASM MALIGNANT
     Dosage: 175 MG, WEEKLY
     Dates: start: 20091029, end: 20091029

REACTIONS (6)
  - Lung disorder [Fatal]
  - Acute prerenal failure [Fatal]
  - Dehydration [Fatal]
  - Diarrhoea [Fatal]
  - Epistaxis [Unknown]
  - Petechiae [Unknown]
